FAERS Safety Report 15625697 (Version 1)
Quarter: 2018Q4

REPORT INFORMATION
  Report Type: Spontaneous
  Country: US (occurrence: US)
  Receive Date: 20181116
  Receipt Date: 20181116
  Transmission Date: 20190205
  Serious: Yes (Other)
  Sender: FDA-Public Use
  Company Number: US-AKRON, INC.-2058933

PATIENT
  Age: 71 Year
  Sex: Female

DRUGS (1)
  1. LACTULOSE SOLUTION [Suspect]
     Active Substance: LACTULOSE
     Indication: CONSTIPATION
     Route: 048

REACTIONS (7)
  - Seizure [Recovered/Resolved]
  - Asthenia [Unknown]
  - Body temperature fluctuation [Unknown]
  - Abnormal faeces [Unknown]
  - Nausea [Unknown]
  - Pollakiuria [Unknown]
  - Muscle spasms [Unknown]
